FAERS Safety Report 16963677 (Version 1)
Quarter: 2019Q4

REPORT INFORMATION
  Report Type: Spontaneous
  Country: CA (occurrence: CA)
  Receive Date: 20191025
  Receipt Date: 20191025
  Transmission Date: 20200122
  Serious: Yes (Other)
  Sender: FDA-Public Use
  Company Number: CA-TEVA-2019-CA-1126735

PATIENT
  Age: 58 Year
  Sex: Male

DRUGS (7)
  1. ASA EC [Concomitant]
     Active Substance: ASPIRIN
  2. PREDNISONE. [Concomitant]
     Active Substance: PREDNISONE
  3. DOMPERIDONE [Concomitant]
     Active Substance: DOMPERIDONE
  4. FLUCONAZOLE. [Suspect]
     Active Substance: FLUCONAZOLE
     Indication: MENINGITIS CRYPTOCOCCAL
     Dosage: 800 MILLIGRAM DAILY;
     Route: 048
  5. BISOPROLOL [Concomitant]
     Active Substance: BISOPROLOL
  6. LANSOPRAZOLE. [Concomitant]
     Active Substance: LANSOPRAZOLE
  7. TACROLIMUS. [Suspect]
     Active Substance: TACROLIMUS
     Indication: SECONDARY IMMUNODEFICIENCY
     Dosage: 2 MILLIGRAM DAILY;
     Route: 048

REACTIONS (9)
  - Agitation [Unknown]
  - Drug level increased [Unknown]
  - Blood creatinine increased [Unknown]
  - Tremor [Unknown]
  - Confusional state [Unknown]
  - Myoclonus [Unknown]
  - Off label use [Unknown]
  - Delirium [Unknown]
  - Product use issue [Unknown]
